FAERS Safety Report 9288626 (Version 1)
Quarter: 2013Q2

REPORT INFORMATION
  Report Type: Spontaneous
  Country: US (occurrence: US)
  Receive Date: 20130514
  Receipt Date: 20130514
  Transmission Date: 20140414
  Serious: No
  Sender: FDA-Public Use
  Company Number: US-OPTIMER PHARMACEUTICALS, INC.-20110046

PATIENT
  Age: 49 Year
  Sex: Female

DRUGS (3)
  1. DIFICID [Suspect]
     Indication: CLOSTRIDIAL INFECTION
     Dosage: 200 MG, BID
     Route: 048
     Dates: start: 20111021
  2. DIFICID [Suspect]
     Indication: DIARRHOEA
  3. INSULIN [Concomitant]
     Indication: DIABETES MELLITUS
     Dosage: UNK

REACTIONS (2)
  - Pruritus [Not Recovered/Not Resolved]
  - Rash morbilliform [Not Recovered/Not Resolved]
